FAERS Safety Report 9248569 (Version 1)
Quarter: 2013Q2

REPORT INFORMATION
  Report Type: Report from Study
  Country: AU (occurrence: AU)
  Receive Date: 20130423
  Receipt Date: 20130423
  Transmission Date: 20140414
  Serious: Yes (Other)
  Sender: FDA-Public Use
  Company Number: AU-PFIZER INC-2013120841

PATIENT
  Age: 35 Year
  Sex: Male

DRUGS (2)
  1. HYDROCORTISONE SODIUM SUCCINATE [Suspect]
     Indication: COLITIS ULCERATIVE
     Dosage: 100 MG/DAY
  2. PREDNISONE [Suspect]
     Indication: COLITIS ULCERATIVE
     Dosage: 12.5 MG/DAY

REACTIONS (2)
  - Mania [Recovering/Resolving]
  - Drug level above therapeutic [Unknown]
